FAERS Safety Report 26118001 (Version 2)
Quarter: 2025Q4

REPORT INFORMATION
  Report Type: Spontaneous
  Country: BR (occurrence: BR)
  Receive Date: 20251203
  Receipt Date: 20251205
  Transmission Date: 20260118
  Serious: Yes (Life-Threatening, Other)
  Sender: PFIZER
  Company Number: BR-PFIZER INC-PV202500139681

PATIENT
  Age: 15 Year
  Sex: Female

DRUGS (4)
  1. CABERGOLINE [Suspect]
     Active Substance: CABERGOLINE
     Indication: Hyperadrenocorticism
     Dosage: UNK
  2. CABERGOLINE [Suspect]
     Active Substance: CABERGOLINE
     Indication: ACTH-producing pituitary tumour
  3. KETOCONAZOLE [Suspect]
     Active Substance: KETOCONAZOLE
     Indication: Hyperadrenocorticism
     Dosage: UNK
  4. KETOCONAZOLE [Suspect]
     Active Substance: KETOCONAZOLE
     Indication: ACTH-producing pituitary tumour

REACTIONS (3)
  - Off label use [Unknown]
  - Drug ineffective for unapproved indication [Unknown]
  - Toxicity to various agents [Unknown]
